FAERS Safety Report 15733893 (Version 3)
Quarter: 2019Q1

REPORT INFORMATION
  Report Type: Spontaneous
  Country: US (occurrence: US)
  Receive Date: 20181218
  Receipt Date: 20190326
  Transmission Date: 20190417
  Serious: No
  Sender: FDA-Public Use
  Company Number: US-PFIZER INC-2018517236

PATIENT
  Age: 19 Year
  Sex: Female

DRUGS (1)
  1. SOMAVERT [Suspect]
     Active Substance: PEGVISOMANT
     Indication: ACROMEGALY
     Dosage: 30 MG, DAILY
     Route: 058
     Dates: start: 201810

REACTIONS (5)
  - Insulin-like growth factor decreased [Unknown]
  - Malaise [Unknown]
  - Injection site mass [Unknown]
  - Pain in jaw [Unknown]
  - Product dose omission [Unknown]
